FAERS Safety Report 16181617 (Version 4)
Quarter: 2019Q2

REPORT INFORMATION
  Report Type: Not Available
  Country: US (occurrence: US)
  Receive Date: 20190410
  Receipt Date: 20190528
  Transmission Date: 20190711
  Serious: Yes (Hospitalization)
  Sender: FDA-Public Use
  Company Number: US-NEUROCRINE BIOSCIENCES INC.-2019NBI00864

PATIENT
  Age: 57 Year
  Sex: Female

DRUGS (7)
  1. SEROQUEL [Concomitant]
     Active Substance: QUETIAPINE FUMARATE
     Indication: DEPRESSION
     Dosage: 200MG ONE TABLET TWICE A DAY AND 400MG AT BEDTIME
  2. HYDROXYZINE [Concomitant]
     Active Substance: HYDROXYZINE HYDROCHLORIDE
     Dosage: 25 MG 1 TABLET TWICE A DAY AND 2 TABLETS AT NIGHT
     Dates: end: 20190329
  3. LOXAPINE. [Concomitant]
     Active Substance: LOXAPINE
  4. CLOZARIL [Concomitant]
     Active Substance: CLOZAPINE
  5. LITHIUM. [Suspect]
     Active Substance: LITHIUM
     Indication: PRODUCT USED FOR UNKNOWN INDICATION
     Dosage: 400 MG IN THE MORNING AND 600 MG IN THE EVENING FOR HER MOOD
  6. INGREZZA [Suspect]
     Active Substance: VALBENAZINE
     Indication: TARDIVE DYSKINESIA
     Route: 048
     Dates: start: 20180530
  7. NALTREXONE [Concomitant]
     Active Substance: NALTREXONE

REACTIONS (4)
  - Schizoaffective disorder [Unknown]
  - Insomnia [Recovering/Resolving]
  - Restlessness [Recovering/Resolving]
  - Sedation [Not Recovered/Not Resolved]

NARRATIVE: CASE EVENT DATE: 201903
